FAERS Safety Report 24716261 (Version 1)
Quarter: 2024Q4

REPORT INFORMATION
  Report Type: Spontaneous
  Country: US (occurrence: US)
  Receive Date: 20241210
  Receipt Date: 20241210
  Transmission Date: 20250115
  Serious: Yes (Other)
  Sender: HIKMA
  Company Number: US-HIKMA PHARMACEUTICALS USA INC.-US-H14001-24-11348

PATIENT
  Age: 76 Year
  Sex: Female

DRUGS (1)
  1. PREDNISONE [Suspect]
     Active Substance: PREDNISONE
     Indication: Autoimmune haemolytic anaemia
     Dosage: VARYING MG
     Route: 065
     Dates: start: 2015

REACTIONS (9)
  - Blister [Unknown]
  - Swelling face [Unknown]
  - Purpura [Unknown]
  - Blood pressure increased [Unknown]
  - Cholecystectomy [Unknown]
  - Hysterectomy [Unknown]
  - Splenectomy [Unknown]
  - Platelet count decreased [Unknown]
  - Drug ineffective [Unknown]
